APPROVED DRUG PRODUCT: MYCIFRADIN
Active Ingredient: NEOMYCIN SULFATE
Strength: EQ 87.5MG BASE/5ML
Dosage Form/Route: SOLUTION;ORAL
Application: N050285 | Product #001
Applicant: PHARMACIA AND UPJOHN CO
Approved: Approved Prior to Jan 1, 1982 | RLD: No | RS: No | Type: DISCN